FAERS Safety Report 11930106 (Version 1)
Quarter: 2016Q1

REPORT INFORMATION
  Report Type: Spontaneous
  Country: US (occurrence: None)
  Receive Date: 20160120
  Receipt Date: 20160120
  Transmission Date: 20160526
  Serious: Yes (Other)
  Sender: FDA-Public Use
  Company Number: None

PATIENT
  Age: 72 Year
  Sex: Male
  Weight: 76.2 kg

DRUGS (10)
  1. ACETAMINOPHEN. [Concomitant]
     Active Substance: ACETAMINOPHEN
  2. ASA [Concomitant]
     Active Substance: ASPIRIN
  3. BACLOFEN. [Concomitant]
     Active Substance: BACLOFEN
  4. MICARDIS [Concomitant]
     Active Substance: TELMISARTAN
  5. VARDENAFIL [Concomitant]
     Active Substance: VARDENAFIL
  6. VITAMIN D [Concomitant]
     Active Substance: CHOLECALCIFEROL
  7. TELMISARTIN [Concomitant]
  8. SILDENAFIL. [Concomitant]
     Active Substance: SILDENAFIL
  9. SIMVASTATIN. [Concomitant]
     Active Substance: SIMVASTATIN
  10. GLATIRAMER ACETATE 20 MG SANDOZ [Suspect]
     Active Substance: GLATIRAMER ACETATE
     Indication: MULTIPLE SCLEROSIS
     Dosage: PREFILLED SYRINGE QD SUBCUTANEOUS
     Dates: start: 20151105, end: 20160113

REACTIONS (3)
  - Urticaria [None]
  - Product quality issue [None]
  - Pruritus [None]

NARRATIVE: CASE EVENT DATE: 20160113
